FAERS Safety Report 23590997 (Version 2)
Quarter: 2024Q1

REPORT INFORMATION
  Report Type: Spontaneous
  Country: FR (occurrence: FR)
  Receive Date: 20240304
  Receipt Date: 20240306
  Transmission Date: 20240409
  Serious: Yes (Other)
  Sender: FDA-Public Use
  Company Number: FR-002147023-NVSC2024FR041225

PATIENT
  Age: 44 Year
  Sex: Female

DRUGS (3)
  1. XOLAIR [Suspect]
     Active Substance: OMALIZUMAB
     Indication: Urticaria
     Dosage: 300 MG (SINCE 3 MONTHS; 2 SYRINGE)
     Route: 058
     Dates: start: 20231222
  2. BILASTINE [Concomitant]
     Active Substance: BILASTINE
     Indication: Urticaria
     Dosage: UNK
     Dates: end: 202401
  3. RUPATADINE FUMARATE [Concomitant]
     Active Substance: RUPATADINE FUMARATE
     Indication: Urticaria
     Dosage: UNK
     Dates: start: 202401

REACTIONS (2)
  - Raynaud^s phenomenon [Not Recovered/Not Resolved]
  - Pharyngitis [Not Recovered/Not Resolved]
